FAERS Safety Report 25447864 (Version 1)
Quarter: 2025Q2

REPORT INFORMATION
  Report Type: Spontaneous
  Country: US (occurrence: None)
  Receive Date: 20250617
  Receipt Date: 20250617
  Transmission Date: 20250716
  Serious: Yes (Life-Threatening, Other)
  Sender: FDA-CTU
  Company Number: None

PATIENT
  Age: 51 Year
  Sex: Female
  Weight: 81 kg

DRUGS (4)
  1. TIRZEPATIDE [Suspect]
     Active Substance: TIRZEPATIDE
     Indication: Weight decreased
     Route: 058
     Dates: start: 20250614, end: 20250614
  2. TIRZEPATIDE [Suspect]
     Active Substance: TIRZEPATIDE
     Indication: Glucose tolerance impaired
  3. VITAMINS [Concomitant]
     Active Substance: VITAMINS
  4. Nextellis [Concomitant]

REACTIONS (9)
  - Vulvovaginal pruritus [None]
  - Injection site pruritus [None]
  - Pruritus [None]
  - Eye swelling [None]
  - Tongue pruritus [None]
  - Throat irritation [None]
  - Peripheral swelling [None]
  - Burning sensation [None]
  - Oropharyngeal pain [None]

NARRATIVE: CASE EVENT DATE: 20250614
